FAERS Safety Report 23827639 (Version 1)
Quarter: 2024Q2

REPORT INFORMATION
  Report Type: Other
  Country: KE (occurrence: KE)
  Receive Date: 20240507
  Receipt Date: 20240507
  Transmission Date: 20240716
  Serious: Yes (Hospitalization)
  Sender: FDA-Public Use
  Company Number: KE-B.Braun Medical Inc.-2156669

PATIENT
  Age: 47 Year
  Sex: Male

DRUGS (8)
  1. HEPARIN SODIUM IN DEXTROSE [Suspect]
     Active Substance: HEPARIN SODIUM
  2. ALTEPLASE [Suspect]
     Active Substance: ALTEPLASE
  3. RIFAXIMIN [Concomitant]
     Active Substance: RIFAXIMIN
  4. FUROSEMIDE [Concomitant]
     Active Substance: FUROSEMIDE
  5. CARVEDILOL [Concomitant]
     Active Substance: CARVEDILOL
  6. LACTULOSE [Concomitant]
     Active Substance: LACTULOSE
  7. AMLODIPINE [Concomitant]
     Active Substance: AMLODIPINE BESYLATE
  8. TENOFOVIR [Concomitant]
     Active Substance: TENOFOVIR

REACTIONS (1)
  - Drug ineffective [Unknown]
